FAERS Safety Report 6748179-0 (Version None)
Quarter: 2010Q2

REPORT INFORMATION
  Report Type: 
  Country: None (occurrence: None)
  Receive Date: 20100531
  Receipt Date: 20100517
  Transmission Date: 20101027
  Serious: Yes (Hospitalization)
  Sender: FDA-Public Use
  Company Number: PHHY2010FR27207

PATIENT
  Age: 87 Year
  Sex: Male
  Weight: 65 kg

DRUGS (10)
  1. EXELON [Suspect]
     Indication: DEMENTIA ALZHEIMER'S TYPE
     Dosage: 9.5MG, DAILY
     Route: 062
     Dates: start: 20090701, end: 20090901
  2. DIAMICRON [Suspect]
     Indication: TYPE 2 DIABETES MELLITUS
     Dosage: 30MG,  DAILY
     Dates: start: 20050101
  3. FLECAINIDE ACETATE [Suspect]
     Dosage: UNK,
  4. KARDEGIC [Concomitant]
     Indication: ARTERIAL DISORDER
     Dosage: 75 MG, QD EVERY TWO DAYS
     Route: 048
  5. DISCOTRINE [Concomitant]
     Dosage: 10MG,
     Route: 062
  6. VASTAREL [Concomitant]
     Dosage: UNK,
  7. CORDIPATCH [Concomitant]
     Dosage: 10MG,
     Route: 062
  8. ADANCOR [Concomitant]
     Dosage: 20MG, DAILY
  9. LERCAN [Concomitant]
     Dosage: 10 MG, DAILY
  10. LESCOL [Concomitant]
     Dosage: 20MG, DAILY

REACTIONS (19)
  - ABDOMINAL PAIN [None]
  - CEREBRAL HAEMORRHAGE [None]
  - CLONUS [None]
  - COGNITIVE DISORDER [None]
  - CONFUSIONAL STATE [None]
  - CONSTIPATION [None]
  - DEHYDRATION [None]
  - DISORIENTATION [None]
  - FAECALOMA [None]
  - FALL [None]
  - GAIT DISTURBANCE [None]
  - GASTRITIS [None]
  - GENERAL PHYSICAL HEALTH DETERIORATION [None]
  - HYPERNATRAEMIA [None]
  - HYPOGLYCAEMIA [None]
  - LUNG DISORDER [None]
  - MYOCARDIAL ISCHAEMIA [None]
  - RHABDOMYOLYSIS [None]
  - SOMNOLENCE [None]
